FAERS Safety Report 5909526-2 (Version None)
Quarter: 2008Q4

REPORT INFORMATION
  Report Type: 
  Country: None (occurrence: None)
  Receive Date: 20081006
  Receipt Date: 20080925
  Transmission Date: 20090506
  Serious: Yes (Hospitalization, Other)
  Sender: FDA-Public Use
  Company Number: MX-MERCK-0809MEX00023

PATIENT
  Age: 29 Year
  Sex: Female
  Weight: 75 kg

DRUGS (2)
  1. SINGULAIR [Suspect]
     Indication: BRONCHOSPASM
     Route: 048
     Dates: start: 20010101, end: 20010101
  2. SINGULAIR [Suspect]
     Route: 048
     Dates: start: 20080901, end: 20080919

REACTIONS (4)
  - ABDOMINAL PAIN [None]
  - DEPRESSION [None]
  - SUICIDAL IDEATION [None]
  - URTICARIA [None]
